FAERS Safety Report 9732480 (Version 1)
Quarter: 2013Q4

REPORT INFORMATION
  Report Type: Spontaneous
  Country: GB (occurrence: GB)
  Receive Date: 20131204
  Receipt Date: 20131204
  Transmission Date: 20140711
  Serious: Yes (Hospitalization)
  Sender: FDA-Public Use
  Company Number: PHHY2013GB137877

PATIENT
  Age: 79 Year
  Sex: Male
  Weight: 68 kg

DRUGS (12)
  1. MIRTAZAPINE [Suspect]
     Dates: start: 20131115
  2. BETNESOL [Concomitant]
     Dates: start: 20130626, end: 20131004
  3. TERAZOSIN [Concomitant]
     Dates: start: 20130723, end: 20131112
  4. BECLOMETASONE [Concomitant]
     Dates: start: 20130912, end: 20131010
  5. DOXYCYCLINE [Concomitant]
     Dates: start: 20130912, end: 20130919
  6. PREDNISOLONE [Concomitant]
     Dates: start: 20130924, end: 20131022
  7. ZOPICLONE [Concomitant]
     Dates: start: 20130924
  8. BETAMETHASONE SODIUM PHOSPHATE [Concomitant]
     Dates: start: 20131022, end: 20131023
  9. OMEPRAZOLE [Concomitant]
     Dates: start: 20131022
  10. DOXAZOSIN [Concomitant]
     Dates: start: 20131025
  11. LAXIDO [Concomitant]
     Dates: start: 20131108
  12. CITALOPRAM [Concomitant]
     Dates: start: 20131115

REACTIONS (1)
  - Anaphylactic reaction [Recovered/Resolved]
